FAERS Safety Report 20015964 (Version 1)
Quarter: 2021Q4

REPORT INFORMATION
  Report Type: Spontaneous
  Country: US (occurrence: None)
  Receive Date: 20211102
  Receipt Date: 20211102
  Transmission Date: 20220303
  Serious: Yes (Other)
  Sender: FDA-Public Use
  Company Number: None

PATIENT
  Age: 56 Year
  Sex: Female

DRUGS (14)
  1. XELODA [Suspect]
     Active Substance: CAPECITABINE
     Indication: Breast cancer
     Dosage: FREQUENCY : TWICE A DAY;?
     Route: 048
     Dates: start: 2021, end: 20211001
  2. AMLODIPINE BESYLATE [Concomitant]
     Active Substance: AMLODIPINE BESYLATE
     Dates: start: 20190926
  3. ATORVASTATIN [Concomitant]
     Active Substance: ATORVASTATIN
     Dates: start: 20210527
  4. betamethasone valerate 0.1% ointment [Concomitant]
     Dates: start: 20210921
  5. CARVEDILOL [Concomitant]
     Active Substance: CARVEDILOL
  6. LOMOTIL [Concomitant]
     Active Substance: ATROPINE SULFATE\DIPHENOXYLATE HYDROCHLORIDE
     Dates: start: 20210921
  7. DULOXETINE [Concomitant]
     Active Substance: DULOXETINE
     Dates: start: 20210803
  8. FUROSEMIDE [Concomitant]
     Active Substance: FUROSEMIDE
     Dates: start: 20210603
  9. losartan 50  mg [Concomitant]
     Dates: start: 20210527
  10. potassium chloride 20 mEq [Concomitant]
     Dates: start: 20210202
  11. PROAIR HFA [Concomitant]
     Active Substance: ALBUTEROL SULFATE
     Dates: start: 20210902
  12. prochloperazine 10 mg [Concomitant]
     Dates: start: 20201222
  13. HYDROCHLOROTHIAZIDE\TRIAMTERENE [Concomitant]
     Active Substance: HYDROCHLOROTHIAZIDE\TRIAMTERENE
     Dates: start: 20210405
  14. Vitamin B6 100 mg tablets [Concomitant]
     Dates: start: 20210803

REACTIONS (1)
  - Palmar-plantar erythrodysaesthesia syndrome [None]

NARRATIVE: CASE EVENT DATE: 20211001
